FAERS Safety Report 13746416 (Version 6)
Quarter: 2017Q4

REPORT INFORMATION
  Report Type: Report from Study
  Country: KR (occurrence: KR)
  Receive Date: 20170712
  Receipt Date: 20171122
  Transmission Date: 20180320
  Serious: Yes (Hospitalization)
  Sender: FDA-Public Use
  Company Number: KR-PFIZER INC-2017289115

PATIENT
  Age: 61 Year
  Sex: Male
  Weight: 66 kg

DRUGS (10)
  1. TROXICAM [Concomitant]
     Dosage: 1 DF (7.5 MG), 1X/DAY
     Route: 048
     Dates: start: 20170622, end: 20170628
  2. JURNISTA [Concomitant]
     Active Substance: HYDROMORPHONE HYDROCHLORIDE
     Indication: PAIN MANAGEMENT
     Dosage: 1 DF, 1X/DAY
     Route: 048
     Dates: start: 20170616, end: 20170616
  3. DILATREND [Concomitant]
     Active Substance: CARVEDILOL
     Dosage: 1 DF (6.25 MG), 2X/DAY
     Route: 048
     Dates: start: 20170620
  4. RANIVIC [Concomitant]
     Indication: PROPHYLAXIS AGAINST GASTROINTESTINAL ULCER
     Dosage: 1 DF, 1X/DAY
     Route: 048
     Dates: start: 20170616, end: 20170616
  5. ADIPAM [Concomitant]
     Indication: DRUG ERUPTION
     Dosage: 1 DF (10 MG), 3X/DAY
     Route: 048
     Dates: start: 20170613
  6. SUNITINIB MALATE. [Suspect]
     Active Substance: SUNITINIB MALATE
     Indication: METASTATIC RENAL CELL CARCINOMA
     Dosage: 50 MG, ONCE DAILY, CYCLIC
     Route: 048
     Dates: start: 20170602, end: 20170629
  7. TROXICAM [Concomitant]
     Indication: PAIN MANAGEMENT
     Dosage: 1 DF (7.5 MG), 1X/DAY
     Route: 048
     Dates: start: 20170616, end: 20170616
  8. DILATREND [Concomitant]
     Active Substance: CARVEDILOL
     Indication: HYPERTENSION
     Dosage: 1 DF (3.125 MG), 2X/DAY
     Route: 048
     Dates: start: 20170613, end: 20170619
  9. JURNISTA [Concomitant]
     Active Substance: HYDROMORPHONE HYDROCHLORIDE
     Dosage: 1 DF, 1X/DAY
     Route: 048
     Dates: start: 20170622, end: 20170628
  10. RANIVIC [Concomitant]
     Dosage: 1 DF, 1X/DAY
     Route: 048
     Dates: start: 20170622, end: 20170628

REACTIONS (1)
  - Skin disorder [Recovered/Resolved]

NARRATIVE: CASE EVENT DATE: 20170630
